FAERS Safety Report 25796213 (Version 2)
Quarter: 2025Q4

REPORT INFORMATION
  Report Type: Spontaneous
  Country: US (occurrence: US)
  Receive Date: 20250912
  Receipt Date: 20251214
  Transmission Date: 20260117
  Serious: No
  Sender: PFIZER
  Company Number: US-PFIZER INC-202500157090

PATIENT
  Age: 87 Year
  Sex: Female

DRUGS (1)
  1. IBRANCE [Suspect]
     Active Substance: PALBOCICLIB
     Dosage: 100 MG, CYCLIC,  IN MORNING FOR 21 DAYS, 7 DAYS OFF
     Route: 048

REACTIONS (2)
  - White blood cell count decreased [Unknown]
  - Red blood cell count abnormal [Unknown]
